FAERS Safety Report 22263786 (Version 1)
Quarter: 2023Q2

REPORT INFORMATION
  Report Type: Spontaneous
  Country: CA (occurrence: CA)
  Receive Date: 20230428
  Receipt Date: 20230428
  Transmission Date: 20230722
  Serious: Yes (Hospitalization)
  Sender: FDA-Public Use
  Company Number: CA-GLAXOSMITHKLINE-CA2023AMR060510

PATIENT

DRUGS (2)
  1. LAMOTRIGINE [Suspect]
     Active Substance: LAMOTRIGINE
     Indication: Product used for unknown indication
     Dosage: 100 MG, Z (2 EVERY 1 DAYS)
     Route: 048
  2. CARBAMAZEPINE [Suspect]
     Active Substance: CARBAMAZEPINE
     Indication: Product used for unknown indication
     Dosage: 100 MG, Z (2 EVERY 1 DAYS)
     Route: 048

REACTIONS (5)
  - Drug eruption [Unknown]
  - Dysphagia [Unknown]
  - Dyspnoea [Unknown]
  - Pyrexia [Unknown]
  - Rash [Unknown]
